FAERS Safety Report 11259589 (Version 1)
Quarter: 2015Q3

REPORT INFORMATION
  Report Type: Spontaneous
  Country: US (occurrence: None)
  Receive Date: 20150709
  Receipt Date: 20150709
  Transmission Date: 20151125
  Serious: Yes (Life-Threatening, Hospitalization, Disabling, Other)
  Sender: FDA-Public Use
  Company Number: None

PATIENT
  Age: 25 Year
  Sex: Female

DRUGS (8)
  1. ONDANSETRON [Concomitant]
     Active Substance: ONDANSETRON
  2. PROMETHAZINE [Concomitant]
     Active Substance: PROMETHAZINE\PROMETHAZINE HYDROCHLORIDE
  3. PROTONIX [Concomitant]
     Active Substance: PANTOPRAZOLE SODIUM
  4. PRILOSEC [Concomitant]
     Active Substance: OMEPRAZOLE MAGNESIUM
  5. GINGER TEA [Concomitant]
  6. IMPLANON [Suspect]
     Active Substance: ETONOGESTREL
     Route: 058
  7. MIRALEX [Concomitant]
  8. SULCRAFATE [Concomitant]

REACTIONS (5)
  - Nausea [None]
  - Constipation [None]
  - Vomiting [None]
  - Weight decreased [None]
  - Impaired work ability [None]

NARRATIVE: CASE EVENT DATE: 20140401
